FAERS Safety Report 6631384-1 (Version None)
Quarter: 2010Q1

REPORT INFORMATION
  Report Type: 
  Country: None (occurrence: None)
  Receive Date: 20100312
  Receipt Date: 20100308
  Transmission Date: 20100710
  Serious: Yes (Life-Threatening)
  Sender: FDA-Public Use
  Company Number: FR-JNJFOC-20100302224

PATIENT
  Sex: Male

DRUGS (4)
  1. RISPERDAL [Suspect]
     Indication: DRUG USE FOR UNKNOWN INDICATION
     Route: 048
  2. DEPAKOTE [Suspect]
     Indication: DRUG USE FOR UNKNOWN INDICATION
     Route: 048
  3. STABLON [Concomitant]
     Route: 048
  4. OXAZEPAM [Concomitant]
     Route: 048

REACTIONS (4)
  - AGITATION [None]
  - COMA [None]
  - CONFUSIONAL STATE [None]
  - HYPERAMMONAEMIA [None]
